FAERS Safety Report 12232051 (Version 1)
Quarter: 2016Q2

REPORT INFORMATION
  Report Type: Spontaneous
  Country: NL (occurrence: NL)
  Receive Date: 20160401
  Receipt Date: 20160401
  Transmission Date: 20160815
  Serious: Yes (Other)
  Sender: FDA-Public Use
  Company Number: NL-GLAXOSMITHKLINE-NL2016GSK043428

PATIENT
  Age: 46 Year
  Sex: Female
  Weight: 60 kg

DRUGS (3)
  1. WELLBUTRIN XL [Suspect]
     Active Substance: BUPROPION HYDROCHLORIDE
     Indication: ATTENTION DEFICIT/HYPERACTIVITY DISORDER
     Dosage: 450 MG, QD
     Dates: start: 201512
  2. SERETIDE [Concomitant]
     Active Substance: FLUTICASONE PROPIONATE\SALMETEROL XINAFOATE
     Indication: OBSTRUCTIVE AIRWAYS DISORDER
     Dosage: 50 UNK, BID
     Dates: start: 2003
  3. DEXAMPHETAMINE [Suspect]
     Active Substance: AMPHETAMINE
     Indication: ATTENTION DEFICIT/HYPERACTIVITY DISORDER
     Dosage: UNK
     Dates: start: 201512

REACTIONS (2)
  - Urticaria [Not Recovered/Not Resolved]
  - Oropharyngeal blistering [Not Recovered/Not Resolved]

NARRATIVE: CASE EVENT DATE: 201603
